FAERS Safety Report 14072846 (Version 1)
Quarter: 2017Q4

REPORT INFORMATION
  Report Type: Spontaneous
  Country: US (occurrence: US)
  Receive Date: 20171010
  Receipt Date: 20171010
  Transmission Date: 20180321
  Serious: No
  Sender: FDA-Public Use
  Company Number: US-JNJFOC-20170713472

PATIENT
  Age: 91 Year
  Sex: Female
  Weight: 72.58 kg

DRUGS (3)
  1. TYLENOL PM EXTRA STRENGTH [Suspect]
     Active Substance: ACETAMINOPHEN\DIPHENHYDRAMINE HYDROCHLORIDE
     Indication: BACK PAIN
     Dosage: AT BED TIME
     Route: 048
  2. TYLENOL PM EXTRA STRENGTH [Suspect]
     Active Substance: ACETAMINOPHEN\DIPHENHYDRAMINE HYDROCHLORIDE
     Indication: INSOMNIA
     Dosage: AT BED TIME
     Route: 048
  3. TYLENOL EXTRA STRENGTH [Suspect]
     Active Substance: ACETAMINOPHEN
     Indication: BACK PAIN
     Dosage: AT BED TIME
     Route: 048

REACTIONS (1)
  - Incorrect dose administered [Unknown]
